FAERS Safety Report 6077761-1 (Version None)
Quarter: 2009Q1

REPORT INFORMATION
  Report Type: 
  Country: None (occurrence: None)
  Receive Date: 20090213
  Receipt Date: 20090202
  Transmission Date: 20090719
  Serious: Yes (Death)
  Sender: FDA-Public Use
  Company Number: ES-PFIZER INC-2009165095

PATIENT

DRUGS (3)
  1. VFEND [Suspect]
     Indication: ASPERGILLOSIS
     Dosage: 400 MG, 2X/DAY
     Dates: start: 20090119, end: 20090119
  2. MERONEM [Concomitant]
  3. TEICOPLANIN [Concomitant]

REACTIONS (1)
  - HEPATITIS [None]
